FAERS Safety Report 7071617-3 (Version None)
Quarter: 2010Q4

REPORT INFORMATION
  Report Type: 
  Country: None (occurrence: None)
  Receive Date: 20101029
  Receipt Date: 20090928
  Transmission Date: 20110411
  Serious: No
  Sender: FDA-Public Use
  Company Number: A0809331A

PATIENT
  Age: 78 Year
  Sex: Male

DRUGS (4)
  1. ADVAIR DISKUS 100/50 [Suspect]
     Indication: EMPHYSEMA
     Dosage: 1PUFF TWICE PER DAY
     Route: 055
     Dates: start: 20090917
  2. LISINOPRIL [Concomitant]
  3. SIMVASTATIN [Concomitant]
  4. FISH OIL [Concomitant]

REACTIONS (5)
  - COUGH [None]
  - INSOMNIA [None]
  - NERVOUSNESS [None]
  - PRODUCTIVE COUGH [None]
  - SNEEZING [None]
